FAERS Safety Report 4288980-9 (Version None)
Quarter: 2004Q1

REPORT INFORMATION
  Report Type: 
  Country: None (occurrence: None)
  Receive Date: 20040206
  Receipt Date: 20040129
  Transmission Date: 20041129
  Serious: Yes (Death, Hospitalization)
  Sender: FDA-Public Use
  Company Number: 200401447

PATIENT
  Age: 30 Year
  Sex: Female

DRUGS (1)
  1. ACETAMINOPHEN [Suspect]
     Dosage: PO
     Route: 048

REACTIONS (9)
  - BLOOD CREATININE INCREASED [None]
  - BLOOD PH DECREASED [None]
  - CARDIAC ARREST [None]
  - COMA [None]
  - DRUG LEVEL ABOVE THERAPEUTIC [None]
  - HEPATIC FAILURE [None]
  - HYPOTENSION [None]
  - INTERNATIONAL NORMALISED RATIO INCREASED [None]
  - MULTI-ORGAN FAILURE [None]
